FAERS Safety Report 6311279-3 (Version None)
Quarter: 2009Q3

REPORT INFORMATION
  Report Type: 
  Country: None (occurrence: None)
  Receive Date: 20090812
  Receipt Date: 20090803
  Transmission Date: 20100115
  Serious: Yes (Other)
  Sender: FDA-Public Use
  Company Number: GXKR2009CN08833

PATIENT
  Age: 24 Year
  Sex: Male

DRUGS (4)
  1. PREDNISONE [Suspect]
     Indication: SYSTEMIC LUPUS ERYTHEMATOSUS
  2. CYCLOSPORINE [Suspect]
     Indication: SYSTEMIC LUPUS ERYTHEMATOSUS
  3. RITUXIMAB (RITUXIMAB ) [Suspect]
     Indication: SYSTEMIC LUPUS ERYTHEMATOSUS
     Dosage: 375 MG/M2, QW, 3-4 CONSECUTIVE WEEKS, INFUSION
  4. RITUXIMAB (RITUXIMAB ) [Suspect]
     Indication: THROMBOCYTOPENIA
     Dosage: 375 MG/M2, QW, 3-4 CONSECUTIVE WEEKS, INFUSION

REACTIONS (4)
  - LUNG INFECTION [None]
  - OSTEONECROSIS [None]
  - SECONDARY HYPERTENSION [None]
  - TREATMENT FAILURE [None]
